FAERS Safety Report 4345627-0 (Version None)
Quarter: 2004Q2

REPORT INFORMATION
  Report Type: 
  Country: None (occurrence: None)
  Receive Date: 20040421
  Receipt Date: 20040408
  Transmission Date: 20050107
  Serious: Yes (Hospitalization)
  Sender: FDA-Public Use
  Company Number: 205449

PATIENT
  Sex: Male

DRUGS (2)
  1. RITUXAN [Suspect]
     Indication: LYMPHOMA
     Dosage: 375 MG/M2, SINGLE, INTRAVENOUS
     Route: 042
     Dates: start: 20040304, end: 20040305
  2. DEXAMETHASONE [Concomitant]

REACTIONS (4)
  - ASTHENIA [None]
  - COMA [None]
  - HEPATIC ENCEPHALOPATHY [None]
  - TUMOUR LYSIS SYNDROME [None]
